FAERS Safety Report 5130585-1 (Version None)
Quarter: 2006Q4

REPORT INFORMATION
  Report Type: 
  Country: None (occurrence: None)
  Receive Date: 20061019
  Receipt Date: 20061016
  Transmission Date: 20070319
  Serious: Yes (Death)
  Sender: FDA-Public Use
  Company Number: 2006PK02068

PATIENT
  Age: 56 Year
  Sex: Female

DRUGS (2)
  1. ZOLADEX [Suspect]
  2. TAMOXIFEN CITRATE [Suspect]

REACTIONS (1)
  - COMPLETED SUICIDE [None]
